FAERS Safety Report 20257241 (Version 2)
Quarter: 2022Q1

REPORT INFORMATION
  Report Type: Report from Study
  Country: PL (occurrence: PL)
  Receive Date: 20211230
  Receipt Date: 20220113
  Transmission Date: 20220423
  Serious: Yes (Death, Hospitalization, Other)
  Sender: FDA-Public Use
  Company Number: PL-TG THERAPEUTICS INC.-TGT002205

PATIENT

DRUGS (16)
  1. INVESTIGATIONAL PRODUCT [Suspect]
     Active Substance: INVESTIGATIONAL PRODUCT
     Indication: B-cell lymphoma
     Dosage: 100 MILLIGRAM, QD
     Route: 048
     Dates: start: 20210923, end: 20211216
  2. UBLITUXIMAB [Suspect]
     Active Substance: UBLITUXIMAB
     Indication: B-cell lymphoma
     Dosage: 900 MILLIGRAM, MONTHLY
     Route: 042
     Dates: start: 20210923, end: 20211216
  3. UMBRALISIB [Suspect]
     Active Substance: UMBRALISIB
     Indication: B-cell lymphoma
     Dosage: 400 MILLIGRAM, QD
     Route: 048
     Dates: start: 20210923, end: 20211216
  4. POTASSIUM CHLORIDE [Concomitant]
     Active Substance: POTASSIUM CHLORIDE
     Indication: Prophylaxis
     Dosage: 610 MILLIGRAM, QD
     Route: 048
     Dates: start: 2016
  5. METFORMIN HYDROCHLORIDE [Concomitant]
     Active Substance: METFORMIN HYDROCHLORIDE
     Indication: Type 2 diabetes mellitus
     Dosage: 1000 MILLIGRAM, QD
     Route: 048
     Dates: start: 2016
  6. PRADAXA [Concomitant]
     Active Substance: DABIGATRAN ETEXILATE MESYLATE
     Indication: Prophylaxis
     Dosage: 150 MILLIGRAM, BID
     Route: 048
     Dates: start: 2010
  7. GALVENOX [Concomitant]
     Indication: Prophylaxis
     Dosage: 500 MILLIGRAM, QD
     Route: 048
     Dates: start: 2019
  8. EUTHYROX [Concomitant]
     Active Substance: LEVOTHYROXINE SODIUM
     Indication: Hypothyroidism
     Dosage: 100 MICROGRAM, QD
     Route: 048
     Dates: start: 2010
  9. ACYCLOVIR [Concomitant]
     Active Substance: ACYCLOVIR
     Indication: Prophylaxis
     Dosage: 400 MILLIGRAM, BID
     Route: 048
     Dates: start: 20210923
  10. BISEPTOL [Concomitant]
     Active Substance: SULFAMETHOXAZOLE\TRIMETHOPRIM
     Indication: Opportunistic infection prophylaxis
     Dosage: 960 MILLIGRAM THREE TIMES WEEKLY
     Route: 048
     Dates: start: 20210923
  11. ALLOPURINOL [Concomitant]
     Active Substance: ALLOPURINOL
     Indication: Prophylaxis
     Dosage: 300 MILLIGRAM, QD
     Route: 048
     Dates: start: 20210923
  12. BIOSOTAL [Concomitant]
     Indication: Arrhythmia
     Dosage: 40 MILLIGRAM, BID
     Route: 048
     Dates: start: 2015
  13. BIOSOTAL [Concomitant]
     Indication: Hypertension
  14. FEROPLEX [Concomitant]
     Indication: Anaemia
     Dosage: 40 MILLIGRAM, QD
     Route: 048
     Dates: start: 20211118
  15. BUPRENORPHINE [Concomitant]
     Active Substance: BUPRENORPHINE
     Indication: Abdominal pain upper
     Dosage: 35 MICROGRAM, EVERY 4 DAYS
     Route: 062
     Dates: start: 20211213
  16. ENOXAPARIN SODIUM [Concomitant]
     Active Substance: ENOXAPARIN SODIUM
     Indication: Thrombosis
     Dosage: 60 MILLIGRAM, BID
     Route: 058
     Dates: start: 20211202

REACTIONS (2)
  - Small intestine carcinoma [Fatal]
  - Malnutrition [Recovered/Resolved]

NARRATIVE: CASE EVENT DATE: 20211015
